FAERS Safety Report 7249323-1 (Version None)
Quarter: 2011Q1

REPORT INFORMATION
  Report Type: 
  Country: None (occurrence: None)
  Receive Date: 20110128
  Receipt Date: 20110119
  Transmission Date: 20110831
  Serious: Yes (Hospitalization)
  Sender: FDA-Public Use
  Company Number: US-NOVOPROD-321899

PATIENT
  Sex: Male

DRUGS (2)
  1. PRAVASTATIN [Concomitant]
     Indication: BLOOD CHOLESTEROL INCREASED
  2. VICTOZA [Suspect]
     Indication: TYPE 2 DIABETES MELLITUS
     Dosage: 1.8 MG, QD
     Dates: start: 20101101, end: 20110114

REACTIONS (1)
  - PANCREATITIS ACUTE [None]
